FAERS Safety Report 17292825 (Version 1)
Quarter: 2020Q1

REPORT INFORMATION
  Report Type: Spontaneous
  Country: US (occurrence: US)
  Receive Date: 20200121
  Receipt Date: 20200121
  Transmission Date: 20200409
  Serious: No
  Sender: FDA-Public Use
  Company Number: US-ASTRAZENECA-2020SE07385

PATIENT
  Age: 69 Year
  Sex: Female

DRUGS (3)
  1. SEROQUEL [Suspect]
     Active Substance: QUETIAPINE FUMARATE
     Indication: INSOMNIA
     Dosage: 400 MG ONCE DAILY AT BED TIME (GENERIC)
     Route: 048
  2. VENLAFAXINE [Concomitant]
     Active Substance: VENLAFAXINE HYDROCHLORIDE
     Indication: DEPRESSION
  3. KLONOPIN [Concomitant]
     Active Substance: CLONAZEPAM
     Indication: ANXIETY

REACTIONS (7)
  - Drug ineffective [Recovered/Resolved]
  - Crying [Recovered/Resolved]
  - Neuralgia [Recovered/Resolved]
  - Loss of control of legs [Recovered/Resolved]
  - Pain in extremity [Recovered/Resolved]
  - Nightmare [Unknown]
  - Withdrawal syndrome [Unknown]
